FAERS Safety Report 14652899 (Version 3)
Quarter: 2018Q2

REPORT INFORMATION
  Report Type: Report from Study
  Country: JP (occurrence: JP)
  Receive Date: 20180319
  Receipt Date: 20180601
  Transmission Date: 20180711
  Serious: Yes (Death)
  Sender: FDA-Public Use
  Company Number: JP-BEH-2018088857

PATIENT
  Age: 63 Year
  Sex: Male
  Weight: 55.3 kg

DRUGS (6)
  1. TRANSAMIN [Concomitant]
     Active Substance: TRANEXAMIC ACID
     Indication: CEREBRAL HAEMORRHAGE
     Dosage: UNK
     Route: 065
     Dates: start: 20180306, end: 20180306
  2. XARELTO [Suspect]
     Active Substance: RIVAROXABAN
     Route: 048
  3. GLYCEOL                            /00744501/ [Concomitant]
     Active Substance: GLYCERIN
     Indication: BRAIN HERNIATION
     Dosage: UNK
     Route: 065
     Dates: start: 20180306, end: 20180310
  4. MANNITOL. [Concomitant]
     Active Substance: MANNITOL
     Indication: BRAIN HERNIATION
     Dosage: UNK
     Route: 065
     Dates: start: 20180306, end: 20180306
  5. BERIPLEX P/N [Suspect]
     Active Substance: COAGULATION FACTOR IX HUMAN\COAGULATION FACTOR VII HUMAN\COAGULATION FACTOR X HUMAN\PROTEIN C\PROTEIN S HUMAN\PROTHROMBIN
     Indication: HAEMORRHAGE
     Dosage: 1500 IU, SINGLE
     Route: 065
     Dates: start: 20180306
  6. BERIPLEX P/N [Suspect]
     Active Substance: COAGULATION FACTOR IX HUMAN\COAGULATION FACTOR VII HUMAN\COAGULATION FACTOR X HUMAN\PROTEIN C\PROTEIN S HUMAN\PROTHROMBIN
     Indication: SURGERY

REACTIONS (1)
  - Cerebral haemorrhage [Fatal]

NARRATIVE: CASE EVENT DATE: 20180307
